FAERS Safety Report 19356316 (Version 1)
Quarter: 2021Q2

REPORT INFORMATION
  Report Type: Spontaneous
  Country: US (occurrence: US)
  Receive Date: 20210602
  Receipt Date: 20210602
  Transmission Date: 20210717
  Serious: No
  Sender: FDA-Public Use
  Company Number: US-SUN PHARMACEUTICAL INDUSTRIES LTD-2020R1-262749

PATIENT
  Sex: Male

DRUGS (4)
  1. BROMSITE [Suspect]
     Active Substance: BROMFENAC SODIUM
     Dosage: UNK, TWICE DAILY (IN THE MORNING AND BEFORE BED)
     Route: 047
  2. DUREZOL [Concomitant]
     Active Substance: DIFLUPREDNATE
     Indication: PRODUCT USED FOR UNKNOWN INDICATION
     Dosage: UNK,TWICE DAILY
     Route: 065
  3. DUREZOL [Concomitant]
     Active Substance: DIFLUPREDNATE
     Dosage: UN, FOUR TIMES DAILY
     Route: 065
  4. BROMSITE [Suspect]
     Active Substance: BROMFENAC SODIUM
     Indication: PRODUCT USED FOR UNKNOWN INDICATION
     Dosage: UNK, 4 TIMES A DAY (LASTED 4 WEEKS)
     Route: 047

REACTIONS (1)
  - Treatment noncompliance [Unknown]
